FAERS Safety Report 24415983 (Version 2)
Quarter: 2025Q4

REPORT INFORMATION
  Report Type: Spontaneous
  Country: JP (occurrence: JP)
  Receive Date: 20241009
  Receipt Date: 20251219
  Transmission Date: 20260117
  Serious: Yes (Other)
  Sender: REGENERON
  Company Number: JP-BAYER-2024A141395

PATIENT
  Age: 74 Year
  Sex: Female

DRUGS (2)
  1. EYLEA HD [Suspect]
     Active Substance: AFLIBERCEPT
     Indication: Age-related macular degeneration
     Dosage: 0.07 ML, ONCE, RIGHT EYE, SOLUTION FOR INJECTION, 114.3 MG/ML
  2. EYLEA HD [Suspect]
     Active Substance: AFLIBERCEPT
     Indication: Choroidal neovascularisation
     Dosage: 0.07 ML, ONCE, SOLUTION FOR INJECTION, 114.3 MG/ML
     Route: 031

REACTIONS (3)
  - Retinal vascular disorder [Unknown]
  - Endophthalmitis [Unknown]
  - Retinal haemorrhage [Unknown]
